FAERS Safety Report 6601094-5 (Version None)
Quarter: 2010Q1

REPORT INFORMATION
  Report Type: 
  Country: None (occurrence: None)
  Receive Date: 20100224
  Receipt Date: 20100224
  Transmission Date: 20100710
  Serious: Yes (Life-Threatening, Disabling, Other)
  Sender: FDA-Public Use
  Company Number: None

PATIENT
  Age: 69 Year
  Sex: Female
  Weight: 84.8226 kg

DRUGS (1)
  1. PREDNISONE 50MG TAB [Suspect]
     Indication: PROPHYLAXIS
     Dosage: 50 MG EVERY 6 HRS MOUTH
     Route: 048
     Dates: start: 20090216, end: 20090217

REACTIONS (9)
  - BLOOD PRESSURE INCREASED [None]
  - CHEST PAIN [None]
  - DYSPNOEA [None]
  - EUPHORIC MOOD [None]
  - FEAR [None]
  - GAIT DISTURBANCE [None]
  - HEADACHE [None]
  - INSOMNIA [None]
  - NAUSEA [None]
